FAERS Safety Report 15164848 (Version 1)
Quarter: 2018Q3

REPORT INFORMATION
  Report Type: Spontaneous
  Country: US (occurrence: US)
  Receive Date: 20180719
  Receipt Date: 20180719
  Transmission Date: 20181010
  Serious: No
  Sender: FDA-Public Use
  Company Number: US-PFIZER INC-2018289669

PATIENT
  Age: 71 Year
  Sex: Female
  Weight: 79.37 kg

DRUGS (4)
  1. CEFDINIR. [Suspect]
     Active Substance: CEFDINIR
     Indication: VAGINAL INFECTION
  2. CEFDINIR. [Suspect]
     Active Substance: CEFDINIR
     Indication: URINARY TRACT INFECTION
     Dosage: UNK
  3. DIFLUCAN [Suspect]
     Active Substance: FLUCONAZOLE
     Indication: VAGINAL INFECTION
  4. DIFLUCAN [Suspect]
     Active Substance: FLUCONAZOLE
     Indication: URINARY TRACT INFECTION
     Dosage: UNK

REACTIONS (1)
  - Drug ineffective [Unknown]
